FAERS Safety Report 7774896-X (Version None)
Quarter: 2011Q3

REPORT INFORMATION
  Report Type: 
  Country: None (occurrence: None)
  Receive Date: 20110921
  Receipt Date: 20110905
  Transmission Date: 20111222
  Serious: Yes (Death, Other)
  Sender: FDA-Public Use
  Company Number: FK201101865

PATIENT
  Age: 41 Year
  Sex: Female

DRUGS (3)
  1. ALEMTUZUMAB (ALEMTUZUMAB) [Suspect]
     Indication: PROPHYLAXIS
     Dosage: 30 MG
  2. TACROLIMUS [Suspect]
     Indication: PROPHYLAXIS
  3. METHYLPREDNISOLONE [Suspect]
     Indication: PROPHYLAXIS

REACTIONS (2)
  - METASTASES TO LUNG [None]
  - ANGIOSARCOMA [None]
